FAERS Safety Report 7878505-0 (Version None)
Quarter: 2011Q4

REPORT INFORMATION
  Report Type: 
  Country: None (occurrence: None)
  Receive Date: 20111028
  Receipt Date: 20111013
  Transmission Date: 20120403
  Serious: Yes (Death, Hospitalization)
  Sender: FDA-Public Use
  Company Number: USA/USA/11/0021685

PATIENT
  Age: 48 Year
  Sex: Female

DRUGS (1)
  1. LAMOTRIGINE [Suspect]
     Indication: PRODUCT USED FOR UNKNOWN INDICATION
     Dosage: 7.5 GM, TOTAL, ORAL
     Route: 048

REACTIONS (14)
  - SINUS TACHYCARDIA [None]
  - HYPOXIC-ISCHAEMIC ENCEPHALOPATHY [None]
  - INTENTIONAL OVERDOSE [None]
  - BLOOD GLUCOSE INCREASED [None]
  - BRAIN OEDEMA [None]
  - NODAL ARRHYTHMIA [None]
  - STATUS EPILEPTICUS [None]
  - LOSS OF CONSCIOUSNESS [None]
  - ELECTROCARDIOGRAM QRS COMPLEX PROLONGED [None]
  - BLOOD CALCIUM DECREASED [None]
  - CARDIAC ARREST [None]
  - BLOOD POTASSIUM DECREASED [None]
  - ELECTROCARDIOGRAM POOR R-WAVE PROGRESSION [None]
  - HAEMOGLOBIN DECREASED [None]
